FAERS Safety Report 5578967-8 (Version None)
Quarter: 2008Q1

REPORT INFORMATION
  Report Type: 
  Country: None (occurrence: None)
  Receive Date: 20080102
  Receipt Date: 20071221
  Transmission Date: 20080703
  Serious: No
  Sender: FDA-Public Use
  Company Number: US-BAYER-200616413BWH

PATIENT
  Sex: Female

DRUGS (1)
  1. CIPRO [Suspect]
     Indication: CYSTITIS
     Route: 048

REACTIONS (1)
  - ABASIA [None]
